FAERS Safety Report 8815962 (Version 1)
Quarter: 2012Q4

REPORT INFORMATION
  Report Type: 
  Country: DK (occurrence: DK)
  Receive Date: 20120928
  Receipt Date: 20120928
  Transmission Date: 20130627
  Serious: Yes (Death, Hospitalization, Other)
  Sender: FDA-Public Use
  Company Number: DK-ROCHE-1138381

PATIENT
  Age: 37 Year
  Sex: Male

DRUGS (2)
  1. ALTEPLASE [Suspect]
     Indication: MYOCARDIAL INFARCTION
     Dosage: ROUTE OF ADMINISTRATION: SY
     Route: 065
  2. HEPARIN [Suspect]
     Indication: PRODUCT USED FOR UNKNOWN INDICATION
     Dosage: ROUTE OF ADMINISTRATION: SY, indication reported as Anticoagulation
     Route: 065

REACTIONS (10)
  - Cerebral artery embolism [Fatal]
  - Hypercoagulation [Fatal]
  - Thrombosis in device [Fatal]
  - Pulmonary artery thrombosis [Unknown]
  - Aortic thrombosis [Unknown]
  - Intracardiac thrombus [Unknown]
  - Staphylococcal sepsis [Unknown]
  - Myocarditis [Unknown]
  - Lymphocytic infiltration [Unknown]
  - Haemolysis [Unknown]
